FAERS Safety Report 6845602-8 (Version None)
Quarter: 2010Q3

REPORT INFORMATION
  Report Type: 
  Country: None (occurrence: None)
  Receive Date: 20100715
  Receipt Date: 20071020
  Transmission Date: 20110219
  Serious: No
  Sender: FDA-Public Use
  Company Number: US-PFIZER INC-2007069811

PATIENT
  Sex: Female
  Weight: 56.4 kg

DRUGS (4)
  1. CHANTIX [Suspect]
     Indication: SMOKING CESSATION THERAPY
     Dates: start: 20070801
  2. XANAX [Concomitant]
     Indication: ANXIETY
  3. SOMA [Concomitant]
     Indication: BACK PAIN
  4. SOMA [Concomitant]
     Indication: ARTHRALGIA

REACTIONS (9)
  - ABNORMAL DREAMS [None]
  - ANXIETY [None]
  - DIZZINESS [None]
  - FATIGUE [None]
  - FEELING ABNORMAL [None]
  - HEADACHE [None]
  - NAUSEA [None]
  - POOR QUALITY SLEEP [None]
  - SOMNOLENCE [None]
